FAERS Safety Report 7652371-0 (Version None)
Quarter: 2011Q3

REPORT INFORMATION
  Report Type: 
  Country: None (occurrence: None)
  Receive Date: 20110722
  Receipt Date: 20110112
  Transmission Date: 20111222
  Serious: Yes (Hospitalization)
  Sender: FDA-Public Use
  Company Number: UTC-004251

PATIENT
  Age: 47 Year
  Sex: Male

DRUGS (2)
  1. DIURETICS (DIURETICS) [Concomitant]
  2. REMODULIN [Suspect]
     Indication: PULMONARY ARTERIAL HYPERTENSION
     Dosage: 99.36 UG/KG (0.069 UG/KG, 1 IN 1 MIN), SUBCUTANEOUS
     Route: 058
     Dates: start: 20100901

REACTIONS (1)
  - DYSPNOEA [None]
